FAERS Safety Report 8049127-6 (Version None)
Quarter: 2011Q4

REPORT INFORMATION
  Report Type: 
  Country: None (occurrence: None)
  Receive Date: 20111209
  Receipt Date: 20110815
  Transmission Date: 20120403
  Serious: No
  Sender: FDA-Public Use
  Company Number: TH-2011-00311

PATIENT
  Sex: Male

DRUGS (1)
  1. EGRIFTA [Suspect]
     Indication: LIPODYSTROPHY ACQUIRED
     Dosage: 1 IN1 D, SUBCUTANEOUS
     Route: 058
     Dates: end: 20110601

REACTIONS (2)
  - TENDONITIS [None]
  - PAIN IN EXTREMITY [None]
